FAERS Safety Report 8491319-6 (Version None)
Quarter: 2012Q3

REPORT INFORMATION
  Report Type: 
  Country: None (occurrence: None)
  Receive Date: 20120706
  Receipt Date: 20120628
  Transmission Date: 20120928
  Serious: Yes (Hospitalization)
  Sender: FDA-Public Use
  Company Number: PHFR2012GB003338

PATIENT
  Sex: Female

DRUGS (3)
  1. SINEMET [Concomitant]
  2. REQUIP [Concomitant]
  3. CLOZARIL [Suspect]
     Dosage: 12.5 MG
     Route: 048
     Dates: start: 20110708, end: 20120509

REACTIONS (7)
  - NECROSIS [None]
  - PSYCHOTIC DISORDER [None]
  - DECUBITUS ULCER [None]
  - SEPSIS [None]
  - SOMNOLENCE [None]
  - PARKINSON'S DISEASE [None]
  - BLOOD PRESSURE INCREASED [None]
